FAERS Safety Report 9392914 (Version 2)
Quarter: 2013Q3

REPORT INFORMATION
  Report Type: Spontaneous
  Country: US (occurrence: US)
  Receive Date: 20130710
  Receipt Date: 20130726
  Transmission Date: 20140515
  Serious: No
  Sender: FDA-Public Use
  Company Number: US-PFIZER INC-2013200753

PATIENT
  Sex: Female

DRUGS (3)
  1. ADVIL [Suspect]
     Indication: MUSCLE SPASMS
     Dosage: 200 MG, UNK
     Route: 048
  2. ADVIL [Suspect]
     Indication: MALAISE
     Dosage: 400 MG (TWO LIQUIGELS OF 200 MG), ONCE A DAY
     Route: 048
     Dates: start: 20130706, end: 20130706
  3. ADVIL [Suspect]
     Indication: HEADACHE
     Dosage: UNK
     Route: 048
     Dates: start: 201307

REACTIONS (2)
  - Urticaria [Unknown]
  - Product quality issue [Unknown]
